FAERS Safety Report 7942427-7 (Version None)
Quarter: 2011Q4

REPORT INFORMATION
  Report Type: 
  Country: None (occurrence: None)
  Receive Date: 20111128
  Receipt Date: 20111118
  Transmission Date: 20120403
  Serious: Yes (Hospitalization)
  Sender: FDA-Public Use
  Company Number: US-GLAXOSMITHKLINE-A0785949A

PATIENT
  Age: 51 Year
  Sex: Male
  Weight: 115.9 kg

DRUGS (2)
  1. REGULAR INSULIN [Concomitant]
  2. AVANDIA [Suspect]
     Indication: TYPE 2 DIABETES MELLITUS
     Dosage: 8MG PER DAY
     Route: 065
     Dates: start: 20030401, end: 20071101

REACTIONS (3)
  - CEREBROVASCULAR ACCIDENT [None]
  - ANEURYSM [None]
  - RENAL INJURY [None]
